FAERS Safety Report 9645875 (Version 2)
Quarter: 2013Q4

REPORT INFORMATION
  Report Type: Report from Study
  Country: AR (occurrence: AR)
  Receive Date: 20131025
  Receipt Date: 20131118
  Transmission Date: 20140711
  Serious: Yes (Other)
  Sender: FDA-Public Use
  Company Number: PHHY2013AR120735

PATIENT
  Sex: Female

DRUGS (2)
  1. RASILEZ D [Suspect]
     Indication: HYPERTENSION
     Dosage: 0.5 DF (300MG ALIS/ 25MG HYDR), DAILY
     Route: 048
  2. EXFORGE [Suspect]
     Dosage: 1 DF (320MG VALS/ 5MG AMLO), UNK

REACTIONS (1)
  - Gingival cancer [Recovering/Resolving]
